FAERS Safety Report 15611014 (Version 1)
Quarter: 2018Q4

REPORT INFORMATION
  Report Type: Spontaneous
  Country: US (occurrence: US)
  Receive Date: 20181113
  Receipt Date: 20181113
  Transmission Date: 20190205
  Serious: Yes (Other)
  Sender: FDA-Public Use
  Company Number: US-ROCHE-2047131

PATIENT
  Age: 61 Year
  Sex: Male

DRUGS (13)
  1. PACLITAXEL. [Concomitant]
     Active Substance: PACLITAXEL
  2. FOLINIC ACID [Concomitant]
     Active Substance: LEUCOVORIN
  3. IRINOTECAN [Concomitant]
     Active Substance: IRINOTECAN
  4. DOCETAXEL. [Suspect]
     Active Substance: DOCETAXEL
     Indication: GASTROOESOPHAGEAL CANCER
     Route: 065
     Dates: start: 2015
  5. HERCEPTIN [Suspect]
     Active Substance: TRASTUZUMAB
     Route: 042
     Dates: start: 201602
  6. CAPECITABINE. [Suspect]
     Active Substance: CAPECITABINE
     Dosage: DOSE ADJUSTMENT
     Route: 065
     Dates: start: 2015
  7. HERCEPTIN [Suspect]
     Active Substance: TRASTUZUMAB
     Indication: GASTROOESOPHAGEAL CANCER
     Route: 042
     Dates: start: 2015
  8. HERCEPTIN [Suspect]
     Active Substance: TRASTUZUMAB
     Dosage: DOSE ADJUSTMENT
     Route: 042
     Dates: start: 2015
  9. CAPECITABINE. [Suspect]
     Active Substance: CAPECITABINE
     Indication: GASTROOESOPHAGEAL CANCER
     Route: 065
     Dates: start: 2015
  10. DOCETAXEL. [Suspect]
     Active Substance: DOCETAXEL
     Dosage: DOSE ADJUSTMENT
     Route: 065
     Dates: end: 201602
  11. CISPLATIN. [Suspect]
     Active Substance: CISPLATIN
     Dosage: DOSE ADJUSTMENT
     Route: 065
     Dates: start: 2015
  12. CISPLATIN. [Suspect]
     Active Substance: CISPLATIN
     Indication: GASTROOESOPHAGEAL CANCER
     Route: 065
     Dates: start: 2015
  13. FLUOROURACIL. [Concomitant]
     Active Substance: FLUOROURACIL

REACTIONS (3)
  - Neutropenia [Unknown]
  - Palmar-plantar erythrodysaesthesia syndrome [Unknown]
  - Fatigue [Unknown]

NARRATIVE: CASE EVENT DATE: 2015
